FAERS Safety Report 7093861-1 (Version None)
Quarter: 2010Q4

REPORT INFORMATION
  Report Type: 
  Country: None (occurrence: None)
  Receive Date: 20101110
  Receipt Date: 20101108
  Transmission Date: 20110411
  Serious: Yes (Other)
  Sender: FDA-Public Use
  Company Number: A0891456A

PATIENT
  Age: 2 Year
  Sex: Female

DRUGS (3)
  1. BUPROPION HYDROCHLORIDE [Suspect]
     Dosage: 1500MG SINGLE DOSE
     Route: 048
     Dates: start: 20101027, end: 20101027
  2. SINGULAIR [Concomitant]
  3. PREDNISONE [Concomitant]

REACTIONS (7)
  - ABNORMAL BEHAVIOUR [None]
  - ACCIDENTAL EXPOSURE [None]
  - AGITATION [None]
  - CONVULSION [None]
  - DISSOCIATION [None]
  - FEELING DRUNK [None]
  - OVERDOSE [None]
